FAERS Safety Report 6230361-2 (Version None)
Quarter: 2009Q2

REPORT INFORMATION
  Report Type: 
  Country: None (occurrence: None)
  Receive Date: 20090611
  Receipt Date: 20090529
  Transmission Date: 20091009
  Serious: Yes (Other)
  Sender: FDA-Public Use
  Company Number: DSA_33789_2009

PATIENT
  Age: 81 Year

DRUGS (16)
  1. CARDIZEM [Suspect]
     Indication: DRUG USE FOR UNKNOWN INDICATION
     Dosage: (DF)
  2. NITROLINGUAL-PUMPSPRAY - GLYCERYL TRINITRATE - SPRAY) (NOT SPECIFIED) [Suspect]
     Indication: DRUG USE FOR UNKNOWN INDICATION
     Dosage: (DF)
  3. AKINETON [Concomitant]
  4. ASMOL /00139502/ [Concomitant]
  5. BISALAX [Concomitant]
  6. LECITHIN [Concomitant]
  7. COVERSYL /00790701/ [Concomitant]
  8. FOSAMAX [Concomitant]
  9. GENTEAL /00445101/ [Concomitant]
  10. VITAMIN B-12 [Concomitant]
  11. NITRO-DUR [Concomitant]
  12. LOVAZA [Concomitant]
  13. SERETIDE /01434201/ [Concomitant]
  14. SPIRIVA [Concomitant]
  15. ZOLADEX [Concomitant]
  16. LANSOPRAZOLE [Concomitant]

REACTIONS (1)
  - MACULAR DEGENERATION [None]
